FAERS Safety Report 5282223-5 (Version None)
Quarter: 2007Q1

REPORT INFORMATION
  Report Type: 
  Country: None (occurrence: None)
  Receive Date: 20070330
  Receipt Date: 20070320
  Transmission Date: 20070707
  Serious: Yes (Hospitalization, Other)
  Sender: FDA-Public Use
  Company Number: US-PFIZER INC-2007022303

PATIENT
  Sex: Female
  Weight: 108.9 kg

DRUGS (2)
  1. BEXTRA [Suspect]
     Indication: OSTEOARTHRITIS
  2. BEXTRA [Suspect]

REACTIONS (3)
  - BLINDNESS UNILATERAL [None]
  - CEREBROVASCULAR ACCIDENT [None]
  - HYPERTENSION [None]
